FAERS Safety Report 5402899-9 (Version None)
Quarter: 2007Q3

REPORT INFORMATION
  Report Type: 
  Country: None (occurrence: None)
  Receive Date: 20070801
  Receipt Date: 20070727
  Transmission Date: 20080115
  Serious: Yes (Death)
  Sender: FDA-Public Use
  Company Number: US-NOVOPROD-266009

PATIENT
  Age: 51 Year
  Sex: Female

DRUGS (3)
  1. NOVOSEVEN [Suspect]
     Indication: COAGULOPATHY
     Dosage: 2.4 MG, QD
  2. NOVOSEVEN [Suspect]
     Dosage: 6 MG, QD
  3. NOVOSEVEN [Suspect]
     Dosage: 6 MG, QD

REACTIONS (1)
  - CEREBRAL ARTERY EMBOLISM [None]
